FAERS Safety Report 7487411-5 (Version None)
Quarter: 2011Q2

REPORT INFORMATION
  Report Type: 
  Country: None (occurrence: None)
  Receive Date: 20110518
  Receipt Date: 20101217
  Transmission Date: 20111010
  Serious: Yes (Other)
  Sender: FDA-Public Use
  Company Number: US-BAYER-201026763NA

PATIENT
  Age: 19 Year
  Sex: Female
  Weight: 57 kg

DRUGS (13)
  1. YAZ [Suspect]
     Indication: ACNE
  2. PHENERGAN HCL [Concomitant]
  3. VICODIN [Concomitant]
  4. PEPCID [Concomitant]
  5. PROTONIX [Concomitant]
     Dosage: DAILY
  6. ACCUTANE [Concomitant]
  7. YASMIN [Suspect]
     Indication: ORAL CONTRACEPTION
     Dates: start: 20050701, end: 20051201
  8. ULTRAM [Concomitant]
  9. REGLAN [Concomitant]
  10. YAZ [Suspect]
     Indication: ORAL CONTRACEPTION
     Route: 048
     Dates: start: 20071101, end: 20080701
  11. DILAUDID [Concomitant]
     Dosage: 8 MG (DAILY DOSE), BID,
  12. YASMIN [Suspect]
     Route: 048
     Dates: start: 20050201, end: 20050401
  13. SOTRET [Concomitant]
     Indication: ACNE
     Dosage: DAILY

REACTIONS (8)
  - CHOLELITHIASIS [None]
  - CHOLECYSTITIS CHRONIC [None]
  - VOMITING [None]
  - ABDOMINAL PAIN [None]
  - CHOLECYSTITIS ACUTE [None]
  - NAUSEA [None]
  - MURPHY'S SIGN POSITIVE [None]
  - GALLBLADDER CHOLESTEROLOSIS [None]
